FAERS Safety Report 8336707-3 (Version None)
Quarter: 2012Q2

REPORT INFORMATION
  Report Type: 
  Country: None (occurrence: None)
  Receive Date: 20120504
  Receipt Date: 20120426
  Transmission Date: 20120825
  Serious: No
  Sender: FDA-Public Use
  Company Number: US-BAYER-2012-041552

PATIENT
  Age: 74 Year
  Sex: Male
  Weight: 102.4 kg

DRUGS (3)
  1. LEVOTHYROXINE SODIUM [Concomitant]
  2. RAMIPRIL [Concomitant]
  3. NAPROXEN SODIUM [Suspect]
     Indication: ANALGESIC THERAPY
     Dosage: 2 DF, QD
     Route: 048
     Dates: start: 20120425, end: 20120425

REACTIONS (2)
  - SWELLING FACE [None]
  - LIP SWELLING [None]
